FAERS Safety Report 5573585-X (Version None)
Quarter: 2007Q4

REPORT INFORMATION
  Report Type: 
  Country: None (occurrence: None)
  Receive Date: 20071226
  Receipt Date: 20071217
  Transmission Date: 20080405
  Serious: Yes (Other)
  Sender: FDA-Public Use
  Company Number: US-JNJFOC-20071110478

PATIENT
  Sex: Male
  Weight: 90.72 kg

DRUGS (5)
  1. REMICADE [Suspect]
     Route: 042
     Dates: end: 20071029
  2. REMICADE [Suspect]
     Indication: CROHN'S DISEASE
     Route: 042
     Dates: end: 20071029
  3. VITAMIN CAP [Concomitant]
  4. IMURAN [Concomitant]
     Indication: CROHN'S DISEASE
  5. TYLENOL [Concomitant]
     Indication: PAIN

REACTIONS (3)
  - BLINDNESS [None]
  - HYPOAESTHESIA [None]
  - PARAESTHESIA [None]
